FAERS Safety Report 6525789-7 (Version None)
Quarter: 2009Q4

REPORT INFORMATION
  Report Type: 
  Country: None (occurrence: None)
  Receive Date: 20091228
  Receipt Date: 20091222
  Transmission Date: 20100525
  Serious: Yes (Other)
  Sender: FDA-Public Use
  Company Number: 220089J09GBR

PATIENT
  Sex: Female

DRUGS (1)
  1. SAIZEN [Suspect]
     Dosage: 8 MG, 1 IN 1 DAYS, SUBCUTANEOUS
     Route: 058
     Dates: start: 20090801

REACTIONS (2)
  - ARTHRALGIA [None]
  - THALASSAEMIA [None]
